FAERS Safety Report 7430947-3 (Version None)
Quarter: 2011Q2

REPORT INFORMATION
  Report Type: 
  Country: None (occurrence: None)
  Receive Date: 20110421
  Receipt Date: 20110414
  Transmission Date: 20111010
  Serious: Yes (Hospitalization, Other)
  Sender: FDA-Public Use
  Company Number: BE-ABBOTT-11P-013-0719206-00

PATIENT
  Sex: Male

DRUGS (27)
  1. MOXON [Concomitant]
     Indication: CORONARY ARTERY DISEASE
  2. TERAZOSABB [Concomitant]
     Indication: CORONARY ARTERY DISEASE
  3. GLUCOPHAGE [Concomitant]
     Indication: PRODUCT USED FOR UNKNOWN INDICATION
  4. MOXON [Concomitant]
     Indication: HYPERTENSION
  5. ADALAT [Concomitant]
     Indication: HYPERTENSION
  6. ZYLORIC [Concomitant]
     Indication: PRODUCT USED FOR UNKNOWN INDICATION
  7. ASAFLOW [Concomitant]
     Indication: PRODUCT USED FOR UNKNOWN INDICATION
  8. HUMIRA [Suspect]
     Indication: ANKYLOSING SPONDYLITIS
     Dates: start: 20070301
  9. ZESTRIL [Concomitant]
     Indication: HYPERTENSION
  10. REPAGLINIDE [Concomitant]
     Dosage: 1MG
  11. PLAVIX [Concomitant]
     Indication: ANTICOAGULANT THERAPY
  12. CONTRAMAL RETARD [Concomitant]
     Indication: PRODUCT USED FOR UNKNOWN INDICATION
  13. CRESTOR [Concomitant]
     Indication: DYSLIPIDAEMIA
  14. MINIPRESS [Concomitant]
     Indication: CORONARY ARTERY DISEASE
  15. EMCONCOR [Concomitant]
     Indication: CORONARY ARTERY DISEASE
  16. SEROXAT [Concomitant]
     Indication: DEPRESSION
  17. ASPIRIN [Concomitant]
     Indication: ANTICOAGULANT THERAPY
  18. XANAX [Concomitant]
     Indication: PRODUCT USED FOR UNKNOWN INDICATION
  19. SULFASALAZINE [Concomitant]
     Indication: ANKYLOSING SPONDYLITIS
  20. MINIPRESS [Concomitant]
     Indication: HYPERTENSION
  21. ADALAT [Concomitant]
     Indication: CORONARY ARTERY DISEASE
  22. ZESTRIL [Concomitant]
     Indication: CORONARY ARTERY DISEASE
  23. EMCONCOR [Concomitant]
     Indication: HYPERTENSION
  24. TERAZOSABB [Concomitant]
     Indication: HYPERTENSION
  25. LIPANTHYL [Concomitant]
     Indication: DYSLIPIDAEMIA
  26. LEVOTHYROXINE SODIUM [Concomitant]
     Indication: HYPOTHYROIDISM
  27. REPAGLINIDE [Concomitant]
     Indication: DIABETES MELLITUS
     Dosage: BEFORE THE MEAL

REACTIONS (19)
  - DIABETIC NEPHROPATHY [None]
  - DIARRHOEA [None]
  - POLYURIA [None]
  - RENAL FAILURE ACUTE [None]
  - VOMITING [None]
  - ELECTROLYTE IMBALANCE [None]
  - DYSURIA [None]
  - INFLAMMATION [None]
  - CLOSTRIDIAL INFECTION [None]
  - PYREXIA [None]
  - ASTHENIA [None]
  - URINE OUTPUT DECREASED [None]
  - IMMUNODEFICIENCY [None]
  - RENAL ARTERY STENOSIS [None]
  - POLLAKIURIA [None]
  - URINE ODOUR ABNORMAL [None]
  - COUGH [None]
  - ORTHOPNOEA [None]
  - HYPERTENSIVE NEPHROPATHY [None]
